FAERS Safety Report 18363185 (Version 1)
Quarter: 2020Q4

REPORT INFORMATION
  Report Type: Spontaneous
  Country: DE (occurrence: DE)
  Receive Date: 20201008
  Receipt Date: 20201008
  Transmission Date: 20210114
  Serious: Yes (Hospitalization, Other)
  Sender: FDA-Public Use
  Company Number: DE-ASTRAZENECA-2020SF23883

PATIENT
  Sex: Male

DRUGS (17)
  1. XIPAMIS [Concomitant]
  2. FLUVASTATIN [Concomitant]
     Active Substance: FLUVASTATIN SODIUM
  3. NITRANGIN [Concomitant]
  4. ENTRESTO [Concomitant]
     Active Substance: SACUBITRIL\VALSARTAN
  5. TORASEMIDE [Concomitant]
     Active Substance: TORSEMIDE
  6. XIPAMIS [Concomitant]
  7. ASPARAGIN [Concomitant]
  8. BRILIQUE [Suspect]
     Active Substance: TICAGRELOR
     Dosage: 60.0MG UNKNOWN
     Route: 048
  9. EPLERENON [Concomitant]
     Active Substance: EPLERENONE
  10. METFORMIN [Concomitant]
     Active Substance: METFORMIN HYDROCHLORIDE
  11. BRILIQUE [Suspect]
     Active Substance: TICAGRELOR
     Dosage: 90.0MG UNKNOWN
     Route: 048
  12. BISOPROLOL [Concomitant]
     Active Substance: BISOPROLOL
  13. PANTOPRAZOL [Concomitant]
     Active Substance: PANTOPRAZOLE SODIUM
  14. TARGIN [Concomitant]
     Active Substance: NALOXONE HYDROCHLORIDE\OXYCODONE HYDROCHLORIDE
  15. DIGITOXIN [Concomitant]
     Active Substance: DIGITOXIN
  16. INSULIN GLARGIN [Concomitant]
     Active Substance: INSULIN GLARGINE
  17. INSULIN LISPRO [Concomitant]
     Active Substance: INSULIN LISPRO

REACTIONS (12)
  - Cardiac failure chronic [Unknown]
  - Mitral valve incompetence [Unknown]
  - Cardiac failure [Unknown]
  - Tricuspid valve incompetence [Unknown]
  - Ventricular tachycardia [Unknown]
  - Coronary artery disease [Unknown]
  - Acute myocardial infarction [Unknown]
  - Pulmonary valve incompetence [Unknown]
  - Portal hypertension [Unknown]
  - Dyspnoea at rest [Unknown]
  - Wound [Unknown]
  - Ejection fraction decreased [Unknown]
